FAERS Safety Report 15178984 (Version 1)
Quarter: 2018Q3

REPORT INFORMATION
  Report Type: Spontaneous
  Country: US (occurrence: US)
  Receive Date: 20180723
  Receipt Date: 20180723
  Transmission Date: 20181010
  Serious: No
  Sender: FDA-Public Use
  Company Number: US-LUPIN PHARMACEUTICALS INC.-2018-02388

PATIENT
  Age: 35 Year
  Sex: Female
  Weight: 59 kg

DRUGS (1)
  1. DROSPIRENONE AND ETHINYL ESTRADIOL TABLETS [Suspect]
     Active Substance: DROSPIRENONE\ETHINYL ESTRADIOL
     Indication: CONTRACEPTION
     Dosage: 3 MG/0.03 MG
     Route: 048
     Dates: start: 201710, end: 20180310

REACTIONS (6)
  - Malaise [Not Recovered/Not Resolved]
  - Acne [Not Recovered/Not Resolved]
  - Dysmenorrhoea [Not Recovered/Not Resolved]
  - Abdominal distension [Not Recovered/Not Resolved]
  - Polymenorrhoea [Not Recovered/Not Resolved]
  - Emotional distress [Not Recovered/Not Resolved]

NARRATIVE: CASE EVENT DATE: 201710
